FAERS Safety Report 17596894 (Version 1)
Quarter: 2020Q1

REPORT INFORMATION
  Report Type: Report from Study
  Country: CA (occurrence: CA)
  Receive Date: 20200330
  Receipt Date: 20200330
  Transmission Date: 20200409
  Serious: Yes (Other)
  Sender: FDA-Public Use
  Company Number: CA-TEVA-2019-CA-1134533

PATIENT
  Age: 48 Year
  Sex: Female

DRUGS (5)
  1. SPIRONOLACTONE. [Concomitant]
     Active Substance: SPIRONOLACTONE
  2. COPAXONE [Suspect]
     Active Substance: GLATIRAMER ACETATE
     Indication: MULTIPLE SCLEROSIS
     Dosage: 20 MILLIGRAM DAILY;
     Dates: start: 20140321, end: 20191214
  3. DOMPERIDONE [Concomitant]
     Active Substance: DOMPERIDONE
  4. PANTALOC [Concomitant]
  5. VITAMIN D [Concomitant]
     Active Substance: VITAMIN D NOS

REACTIONS (38)
  - Rash [Unknown]
  - Joint swelling [Unknown]
  - Cough [Unknown]
  - Arthralgia [Unknown]
  - Injection site scar [Unknown]
  - Abdominal pain upper [Unknown]
  - Rash macular [Unknown]
  - Purpura [Unknown]
  - Adverse drug reaction [Unknown]
  - Malaise [Recovering/Resolving]
  - Dyspnoea [Recovered/Resolved]
  - Headache [Unknown]
  - Abdominal distension [Not Recovered/Not Resolved]
  - Urticaria [Unknown]
  - Chest discomfort [Unknown]
  - Feeling hot [Unknown]
  - Chest pain [Recovered/Resolved]
  - Urticarial vasculitis [Unknown]
  - Pain [Unknown]
  - Livedo reticularis [Unknown]
  - Nausea [Recovering/Resolving]
  - Pruritus [Unknown]
  - Weight decreased [Unknown]
  - Contusion [Unknown]
  - Injection site reaction [Unknown]
  - Throat irritation [Unknown]
  - Pain in extremity [Unknown]
  - Rhinorrhoea [Recovered/Resolved]
  - Paraesthesia oral [Unknown]
  - Scratch [Unknown]
  - Product quality issue [Unknown]
  - Peripheral swelling [Recovered/Resolved]
  - Nervousness [Recovering/Resolving]
  - Sneezing [Recovered/Resolved]
  - Limb discomfort [Unknown]
  - Erythema [Recovered/Resolved]
  - Dyspepsia [Recovering/Resolving]
  - Nasal congestion [Unknown]

NARRATIVE: CASE EVENT DATE: 20191102
